FAERS Safety Report 13443283 (Version 4)
Quarter: 2017Q3

REPORT INFORMATION
  Report Type: Spontaneous
  Country: AU (occurrence: AU)
  Receive Date: 20170414
  Receipt Date: 20170817
  Transmission Date: 20171127
  Serious: Yes (Life-Threatening)
  Sender: FDA-Public Use
  Company Number: AU-GLAXOSMITHKLINE-AU2017GSK052863

PATIENT
  Sex: Male

DRUGS (1)
  1. ASMOL [Suspect]
     Active Substance: ALBUTEROL SULFATE
     Indication: ASTHMA
     Dosage: UNK
     Route: 055

REACTIONS (3)
  - Product quality issue [Unknown]
  - Wrong technique in product usage process [Unknown]
  - Drug ineffective [Recovered/Resolved]

NARRATIVE: CASE EVENT DATE: 20170409
